FAERS Safety Report 4544651-2 (Version None)
Quarter: 2004Q4

REPORT INFORMATION
  Report Type: 
  Country: None (occurrence: None)
  Receive Date: 20041230
  Receipt Date: 20041217
  Transmission Date: 20050328
  Serious: Yes (Hospitalization)
  Sender: FDA-Public Use
  Company Number: 2004UW25786

PATIENT
  Age: 65 Year
  Sex: Male

DRUGS (12)
  1. CRESTOR [Suspect]
     Dosage: 10 MG QD PO
     Route: 048
     Dates: start: 20040501, end: 20040601
  2. CRESTOR [Suspect]
     Dosage: 20 MG QD PO
     Route: 048
     Dates: start: 20040601
  3. COUMADIN [Suspect]
     Dosage: 450
  4. DIGOXIN [Suspect]
     Dosage: 0.25
  5. ZESTRIL [Concomitant]
  6. K-DUR 10 [Concomitant]
  7. ASPIRIN [Concomitant]
  8. VALIUM [Concomitant]
  9. COREG [Concomitant]
  10. TRENTAL ^ALBERT-ROUSSEL^ [Concomitant]
  11. ZETIA [Concomitant]
  12. LASIX [Concomitant]

REACTIONS (12)
  - ASTHENIA [None]
  - BLOOD CREATINE PHOSPHOKINASE INCREASED [None]
  - CONFUSIONAL STATE [None]
  - DIARRHOEA [None]
  - DRUG INTERACTION [None]
  - ESCHERICHIA URINARY TRACT INFECTION [None]
  - FALL [None]
  - LETHARGY [None]
  - LIVER FUNCTION TEST ABNORMAL [None]
  - MUSCULAR WEAKNESS [None]
  - MYOPATHY [None]
  - RENAL IMPAIRMENT [None]
